FAERS Safety Report 8770154 (Version 2)
Quarter: 2012Q4

REPORT INFORMATION
  Report Type: 
  Country: JP (occurrence: JP)
  Receive Date: 20120905
  Receipt Date: 20121018
  Transmission Date: 20130627
  Serious: Yes (Life-Threatening, Hospitalization)
  Sender: FDA-Public Use
  Company Number: JP-009507513-1206USA01125

PATIENT
  Age: 69 Year
  Sex: Male

DRUGS (8)
  1. GLACTIV [Suspect]
     Indication: TYPE 2 DIABETES MELLITUS
     Dosage: 50 mg, qd
     Route: 048
     Dates: start: 20120424, end: 20120531
  2. PREMINENT [Concomitant]
  3. PLETAAL [Concomitant]
  4. ZANTAC [Concomitant]
  5. XYZAL [Concomitant]
  6. NOVORAPID [Concomitant]
  7. LEVEMIR [Concomitant]
  8. FLUCORT (FLUOCINOLONE ACETONIDE) [Concomitant]

REACTIONS (3)
  - Rhabdomyolysis [Recovered/Resolved]
  - Anaemia [Not Recovered/Not Resolved]
  - Pancytopenia [Not Recovered/Not Resolved]
